FAERS Safety Report 4503514-9 (Version None)
Quarter: 2004Q4

REPORT INFORMATION
  Report Type: 
  Country: None (occurrence: None)
  Receive Date: 20041112
  Receipt Date: 20041102
  Transmission Date: 20050328
  Serious: Yes (Hospitalization)
  Sender: FDA-Public Use
  Company Number: 2004242419ES

PATIENT
  Age: 60 Year
  Sex: 0

DRUGS (2)
  1. SOMAVERT [Suspect]
     Dosage: SUBCUTANEOUS
     Route: 058
  2. INSULIN [Concomitant]

REACTIONS (1)
  - DIABETIC HYPEROSMOLAR COMA [None]
